FAERS Safety Report 11682305 (Version 4)
Quarter: 2016Q2

REPORT INFORMATION
  Report Type: Spontaneous
  Country: CA (occurrence: CA)
  Receive Date: 20151029
  Receipt Date: 20160427
  Transmission Date: 20160815
  Serious: Yes (Hospitalization)
  Sender: FDA-Public Use
  Company Number: CA-SYMPLMED PHARMACEUTICALS-2015SYMPLMED000055

PATIENT

DRUGS (3)
  1. METOPROLOL TARTRATE. [Concomitant]
     Active Substance: METOPROLOL TARTRATE
     Indication: HYPERTENSION
     Dosage: 50 MG, QD
     Dates: start: 2011
  2. COVERSYL [Suspect]
     Active Substance: PERINDOPRIL
     Indication: HYPERTENSION
     Dosage: 4 MG, QD
     Route: 048
     Dates: start: 2011, end: 20151019
  3. IMIPRAMINE HYDROCHLORIDE. [Concomitant]
     Active Substance: IMIPRAMINE HYDROCHLORIDE
     Indication: HYPERTONIC BLADDER
     Dosage: 20 MG, QD
     Dates: start: 2014

REACTIONS (6)
  - Hepatic cyst [Not Recovered/Not Resolved]
  - Vomiting [Unknown]
  - Blood creatinine increased [Unknown]
  - Hydronephrosis [Unknown]
  - Nephrolithiasis [Recovered/Resolved]
  - Nausea [Unknown]

NARRATIVE: CASE EVENT DATE: 201302
